FAERS Safety Report 15899504 (Version 1)
Quarter: 2019Q1

REPORT INFORMATION
  Report Type: Spontaneous
  Country: GB (occurrence: GB)
  Receive Date: 20190201
  Receipt Date: 20190201
  Transmission Date: 20190417
  Serious: Yes (Other)
  Sender: FDA-Public Use
  Company Number: GB-BIO PRODUCTS LABORATORY LTD-2062030

PATIENT
  Age: 5 Year
  Sex: Male

DRUGS (8)
  1. ACYCLOVIR AND ANTIEPILEPTIC (LEVETIRACETAM) [Concomitant]
  2. MENINGITIC DOSE OF IV MEROPENEM [Concomitant]
     Active Substance: MEROPENEM ANHYDROUS
  3. GENERIC IVIG [Suspect]
     Active Substance: HUMAN IMMUNOGLOBULIN G
     Indication: ENTEROVIRUS INFECTION
     Route: 042
  4. CARBOPLATIN. [Suspect]
     Active Substance: CARBOPLATIN
  5. IFOSFAMIDE. [Suspect]
     Active Substance: IFOSFAMIDE
  6. DEXAMETHASONE. [Suspect]
     Active Substance: DEXAMETHASONE
  7. RITUXIMAB. [Suspect]
     Active Substance: RITUXIMAB
  8. ETOPOSIDE. [Suspect]
     Active Substance: ETOPOSIDE

REACTIONS (7)
  - Pyrexia [Unknown]
  - Cognitive disorder [Recovered/Resolved with Sequelae]
  - Off label use [Recovered/Resolved with Sequelae]
  - Altered state of consciousness [Recovered/Resolved with Sequelae]
  - Movement disorder [Recovered/Resolved with Sequelae]
  - Partial seizures [Recovered/Resolved with Sequelae]
  - Aphasia [Recovered/Resolved with Sequelae]
